FAERS Safety Report 5369037-2 (Version None)
Quarter: 2007Q2

REPORT INFORMATION
  Report Type: 
  Country: None (occurrence: None)
  Receive Date: 20070625
  Receipt Date: 20070620
  Transmission Date: 20071010
  Serious: Yes (Other)
  Sender: FDA-Public Use
  Company Number: DE-BRISTOL-MYERS SQUIBB COMPANY-13818141

PATIENT
  Age: 41 Year
  Sex: Male
  Weight: 64 kg

DRUGS (2)
  1. SUSTIVA [Suspect]
     Indication: HIV INFECTION
     Dates: start: 20070208
  2. TRUVADA [Suspect]
     Indication: HIV INFECTION
     Dosage: 300MG/200MG
     Dates: start: 20070208

REACTIONS (2)
  - GINGIVITIS [None]
  - PERIODONTITIS [None]
